FAERS Safety Report 19673310 (Version 2)
Quarter: 2021Q4

REPORT INFORMATION
  Report Type: Report from Study
  Country: US (occurrence: US)
  Receive Date: 20210809
  Receipt Date: 20211022
  Transmission Date: 20220303
  Serious: No
  Sender: FDA-Public Use
  Company Number: NVSC2021US179092

PATIENT
  Age: 18 Year
  Sex: Female

DRUGS (1)
  1. ILARIS [Suspect]
     Active Substance: CANAKINUMAB
     Indication: Product used for unknown indication
     Dosage: 150 MG/KG EVERY 5 WEEKS
     Route: 058

REACTIONS (4)
  - Dry skin [Unknown]
  - Urticaria [Recovered/Resolved]
  - Pharyngeal swelling [Unknown]
  - Throat irritation [Unknown]

NARRATIVE: CASE EVENT DATE: 20210401
